FAERS Safety Report 8896416 (Version 1)
Quarter: 2012Q4

REPORT INFORMATION
  Report Type: 
  Country: FR (occurrence: None)
  Receive Date: 20121102
  Receipt Date: 20121102
  Transmission Date: 20130627
  Serious: Yes (Hospitalization)
  Sender: FDA-Public Use
  Company Number: BACL20120008

PATIENT
  Age: 50 Year
  Sex: Female

DRUGS (2)
  1. BACLOFEN [Suspect]
     Indication: ADRENOLEUKODYSTROPHY
     Dosage: 1800 mg, one dose, oral
     Route: 048
     Dates: start: 201204, end: 201204
  2. BACLOFEN [Suspect]
     Indication: ADRENOLEUKODYSTROPHY
     Dosage: 60 mg, 60 mg daily, oral
     Route: 048
     Dates: start: 2004, end: 201204

REACTIONS (6)
  - Intentional overdose [None]
  - Coma [None]
  - Bradypnoea [None]
  - Oxygen saturation decreased [None]
  - Hypotension [None]
  - Bradycardia [None]
